FAERS Safety Report 20999105 (Version 1)
Quarter: 2022Q2

REPORT INFORMATION
  Report Type: Spontaneous
  Country: US (occurrence: None)
  Receive Date: 20220623
  Receipt Date: 20220623
  Transmission Date: 20220721
  Serious: Yes (Hospitalization, Other)
  Sender: FDA-Public Use
  Company Number: 2022A224701

PATIENT
  Age: 72 Year
  Sex: Male
  Weight: 77.1 kg

DRUGS (1)
  1. SYMBICORT [Suspect]
     Active Substance: BUDESONIDE\FORMOTEROL FUMARATE DIHYDRATE
     Indication: Asthma
     Dosage: 160/4.5 MCG TWICE DAILY
     Route: 055
     Dates: end: 2021

REACTIONS (5)
  - Fall [Recovered/Resolved]
  - Femur fracture [Unknown]
  - Dyspnoea [Recovered/Resolved]
  - Gait disturbance [Recovering/Resolving]
  - Cough [Recovered/Resolved]

NARRATIVE: CASE EVENT DATE: 20220501
